FAERS Safety Report 15481151 (Version 3)
Quarter: 2018Q4

REPORT INFORMATION
  Report Type: Report from Study
  Country: US (occurrence: US)
  Receive Date: 20181010
  Receipt Date: 20181030
  Transmission Date: 20190205
  Serious: Yes (Death, Other)
  Sender: FDA-Public Use
  Company Number: US-BAUSCH-BL-2018-027630

PATIENT
  Sex: Female

DRUGS (1)
  1. XIFAXAN [Suspect]
     Active Substance: RIFAXIMIN
     Indication: HEPATIC FAILURE
     Route: 065
     Dates: end: 20180917

REACTIONS (7)
  - Hepatorenal syndrome [Fatal]
  - Hepatic failure [Fatal]
  - Hepatic cirrhosis [Unknown]
  - Hypertension [Unknown]
  - Chronic kidney disease [Unknown]
  - Renal failure [Fatal]
  - Left ventricular failure [Unknown]
